FAERS Safety Report 12357273 (Version 1)
Quarter: 2016Q2

REPORT INFORMATION
  Report Type: Spontaneous
  Country: US (occurrence: US)
  Receive Date: 20160511
  Receipt Date: 20160511
  Transmission Date: 20160815
  Serious: No
  Sender: FDA-Public Use
  Company Number: 1050926

PATIENT
  Age: 69 Year
  Sex: Male
  Weight: 104.55 kg

DRUGS (27)
  1. CLONAZEPAM. [Concomitant]
     Active Substance: CLONAZEPAM
     Route: 048
  2. CETAPHIL [Concomitant]
     Active Substance: AVOBENZONE\OCTOCRYLENE\TRICLOSAN
  3. TUBERCULIN ALLERGY SYRINGE [Concomitant]
  4. CHOLECALCIFEROL [Concomitant]
     Active Substance: CHOLECALCIFEROL
  5. IBUPROFEN. [Concomitant]
     Active Substance: IBUPROFEN
  6. LISINOPRIL. [Concomitant]
     Active Substance: LISINOPRIL
  7. VITAMIN E [Concomitant]
     Active Substance: .ALPHA.-TOCOPHEROL
  8. CARVEDILOL. [Concomitant]
     Active Substance: CARVEDILOL
     Route: 048
  9. MS CONTIN [Concomitant]
     Active Substance: MORPHINE SULFATE
     Route: 048
  10. IPRATROPIUM BROMIDE AND ALBUTEROL SULFATE [Concomitant]
     Active Substance: ALBUTEROL SULFATE\IPRATROPIUM BROMIDE
  11. BIOTIN [Concomitant]
     Active Substance: BIOTIN
  12. WARFARIN SODIUM. [Suspect]
     Active Substance: WARFARIN SODIUM
     Indication: DEEP VEIN THROMBOSIS
     Route: 048
  13. TESTOSTERONE CYPIONATE. [Concomitant]
     Active Substance: TESTOSTERONE CYPIONATE
     Route: 030
  14. OMEPRAZOLE. [Concomitant]
     Active Substance: OMEPRAZOLE
  15. NYSTATIN. [Concomitant]
     Active Substance: NYSTATIN
  16. LORATADINE. [Concomitant]
     Active Substance: LORATADINE
     Route: 048
  17. TRAZODONE [Concomitant]
     Active Substance: TRAZODONE HYDROCHLORIDE
  18. TRIAMCINOLONE ACETONIDE. [Concomitant]
     Active Substance: TRIAMCINOLONE ACETONIDE
  19. ALPROSTADIL. [Concomitant]
     Active Substance: ALPROSTADIL
  20. ASPIRIN 81 MG [Concomitant]
     Active Substance: ASPIRIN
     Route: 048
  21. PROVENTIL HFA [Concomitant]
     Active Substance: ALBUTEROL SULFATE
  22. BUDESONIDE INHALATION [Concomitant]
     Active Substance: BUDESONIDE
  23. FLUTICASONE [Concomitant]
     Active Substance: FLUTICASONE\FLUTICASONE PROPIONATE
  24. HYDROMORPHONE HCL [Concomitant]
     Active Substance: HYDROMORPHONE HYDROCHLORIDE
     Route: 048
  25. TEMAZEPAM. [Concomitant]
     Active Substance: TEMAZEPAM
  26. ASCORBIC ACID. [Concomitant]
     Active Substance: ASCORBIC ACID
  27. MULTIVITAMIN AND MULTIMINERAL TABLET [Concomitant]

REACTIONS (2)
  - International normalised ratio increased [None]
  - Haemorrhage [None]
